FAERS Safety Report 13055541 (Version 5)
Quarter: 2017Q2

REPORT INFORMATION
  Report Type: Report from Study
  Country: CO (occurrence: CO)
  Receive Date: 20161222
  Receipt Date: 20170614
  Transmission Date: 20170830
  Serious: Yes (Other)
  Sender: FDA-Public Use
  Company Number: CO-REGENERON PHARMACEUTICALS, INC.-2016-25241

PATIENT

DRUGS (1)
  1. EYLEA [Suspect]
     Active Substance: AFLIBERCEPT
     Indication: RETINAL VEIN OCCLUSION
     Dosage: 1 DF, Q1MON
     Route: 031
     Dates: start: 20160401

REACTIONS (2)
  - Blood glucose decreased [Unknown]
  - Glaucoma [Recovering/Resolving]

NARRATIVE: CASE EVENT DATE: 2016
